FAERS Safety Report 9716035 (Version 1)
Quarter: 2013Q4

REPORT INFORMATION
  Report Type: Report from Study
  Country: GR (occurrence: GR)
  Receive Date: 20131127
  Receipt Date: 20131127
  Transmission Date: 20140711
  Serious: Yes (Other)
  Sender: FDA-Public Use
  Company Number: GR-ASTELLAS-2013US012373

PATIENT
  Age: 75 Year
  Sex: Female

DRUGS (5)
  1. ERLOTINIB TABLET [Suspect]
     Indication: LUNG NEOPLASM MALIGNANT
     Dosage: 150 MG, UID/QD
     Route: 065
     Dates: start: 20100210, end: 20110710
  2. ERLOTINIB TABLET [Suspect]
     Dosage: 100 MG, UID/QD
     Route: 065
     Dates: start: 20110711, end: 20111108
  3. ERLOTINIB TABLET [Suspect]
     Dosage: 100 MG, UNKNOWN/D
     Route: 065
     Dates: start: 20111129
  4. ERLOTINIB TABLET [Suspect]
     Dosage: 150 MG, UNKNOWN/D
     Route: 065
     Dates: start: 20120103, end: 20130103
  5. ERLOTINIB TABLET [Suspect]
     Dosage: 150 MG, UNKNOWN/D
     Route: 065
     Dates: start: 20130221, end: 20130913

REACTIONS (15)
  - Atrial fibrillation [Unknown]
  - Eye infection [Unknown]
  - Venous thrombosis limb [Unknown]
  - Respiratory tract infection [Not Recovered/Not Resolved]
  - Urinary tract infection [Unknown]
  - Nodule [Unknown]
  - Breast ulceration [Recovering/Resolving]
  - Oedema peripheral [Unknown]
  - Ulcer [Recovering/Resolving]
  - Alopecia [Unknown]
  - Blood thyroid stimulating hormone increased [Unknown]
  - Hyperkeratosis [Recovered/Resolved]
  - Growth of eyelashes [Unknown]
  - Eczema [Recovering/Resolving]
  - Therapeutic response decreased [Unknown]
